FAERS Safety Report 8810627 (Version 1)
Quarter: 2012Q4

REPORT INFORMATION
  Report Type: Spontaneous
  Country: US (occurrence: None)
  Receive Date: 20120924
  Receipt Date: 20120924
  Transmission Date: 20130627
  Serious: Yes (Other)
  Sender: FDA-Public Use
  Company Number: None

PATIENT
  Age: 67 Year
  Sex: Male
  Weight: 97.7 kg

DRUGS (2)
  1. SOLUMEDROL(METHYLPREDNISOLONE SODIUM SUCCINATE) INFUSION [Suspect]
     Indication: COPD
     Route: 042
     Dates: start: 20120914
  2. MECLIZINE [Suspect]
     Indication: COPD
     Route: 048

REACTIONS (3)
  - Rash macular [None]
  - Pruritus [None]
  - Urticaria [None]
